FAERS Safety Report 5246723-6 (Version None)
Quarter: 2007Q1

REPORT INFORMATION
  Report Type: 
  Country: None (occurrence: None)
  Receive Date: 20070220
  Receipt Date: 20070205
  Transmission Date: 20070707
  Serious: Yes (Other)
  Sender: FDA-Public Use
  Company Number: 2007PV029545

PATIENT
  Age: 52 Year
  Sex: Female

DRUGS (9)
  1. BYETTA [Suspect]
     Indication: DIABETES MELLITUS NON-INSULIN-DEPENDENT
     Dosage: 10 MCG;BID; SC; 5 MCG;BID;SC
     Route: 058
     Dates: start: 20070103, end: 20070202
  2. BYETTA [Suspect]
     Indication: DIABETES MELLITUS NON-INSULIN-DEPENDENT
     Dosage: 10 MCG;BID; SC; 5 MCG;BID;SC
     Route: 058
     Dates: start: 20070203, end: 20070204
  3. METFORMIN HCL [Concomitant]
  4. AVANDIA [Concomitant]
  5. AMARYL [Concomitant]
  6. ACCUPRIL [Concomitant]
  7. TOPROL-XL [Concomitant]
  8. ASPIRIN [Concomitant]
  9. ACIPHEX [Concomitant]

REACTIONS (4)
  - BLOOD GLUCOSE DECREASED [None]
  - CHEST PAIN [None]
  - HEADACHE [None]
  - LOSS OF CONSCIOUSNESS [None]
